FAERS Safety Report 4537001-9 (Version None)
Quarter: 2004Q4

REPORT INFORMATION
  Report Type: 
  Country: None (occurrence: None)
  Receive Date: 20041223
  Receipt Date: 20041210
  Transmission Date: 20050328
  Serious: Yes (Hospitalization)
  Sender: FDA-Public Use
  Company Number: DE-BRISTOL-MYERS SQUIBB COMPANY-12805230

PATIENT
  Age: 57 Year
  Sex: Female
  Weight: 68 kg

DRUGS (4)
  1. CYCLOPHOSPHAMIDE [Suspect]
     Indication: BREAST CANCER
     Route: 048
     Dates: start: 20040217, end: 20040229
  2. EPIRUBICIN [Suspect]
     Indication: BREAST CANCER
     Dosage: INITIAL DOSE: 17-FEB-2004
     Route: 042
     Dates: start: 20040224, end: 20040224
  3. FLUOROURACIL [Suspect]
     Indication: BREAST CANCER
     Dosage: INITIAL DOSE: 17-FEB-2004
     Route: 042
     Dates: start: 20040224, end: 20040224
  4. NEXIUM [Concomitant]

REACTIONS (1)
  - BREAST NEOPLASM [None]
